FAERS Safety Report 17111235 (Version 1)
Quarter: 2019Q4

REPORT INFORMATION
  Report Type: Spontaneous
  Country: IT (occurrence: IT)
  Receive Date: 20191204
  Receipt Date: 20191204
  Transmission Date: 20200122
  Serious: Yes (Other)
  Sender: FDA-Public Use
  Company Number: IT-MYLANLABS-2019M1117254

PATIENT
  Age: 41 Year
  Sex: Female

DRUGS (6)
  1. PREDNISONE. [Suspect]
     Active Substance: PREDNISONE
     Indication: GRANULOMATOSIS WITH POLYANGIITIS
     Dosage: UNK, DOSE REDUCED IN 2015
  2. PREDNISONE. [Suspect]
     Active Substance: PREDNISONE
     Dosage: 12.5 MG, QD
  3. PREDNISONE. [Suspect]
     Active Substance: PREDNISONE
     Dosage: UNK
     Dates: start: 2001, end: 2006
  4. PREDNISONE. [Suspect]
     Active Substance: PREDNISONE
     Dosage: UNK, QD LESS THAN 12.5 MG/DAY
     Dates: start: 2006
  5. PREDNISONE. [Suspect]
     Active Substance: PREDNISONE
     Dosage: 12.5 MG, QD
  6. PREDNISONE. [Suspect]
     Active Substance: PREDNISONE
     Indication: TAKAYASU^S ARTERITIS
     Dosage: UNK, , DOSE REDUCED IN 2017

REACTIONS (5)
  - Thunderclap headache [Recovered/Resolved]
  - Reversible cerebral vasoconstriction syndrome [Recovered/Resolved]
  - Takayasu^s arteritis [Recovered/Resolved]
  - Drug abuse [Unknown]
  - Rebound effect [Recovered/Resolved]

NARRATIVE: CASE EVENT DATE: 2015
